FAERS Safety Report 7374334-5 (Version None)
Quarter: 2011Q1

REPORT INFORMATION
  Report Type: 
  Country: None (occurrence: None)
  Receive Date: 20110225
  Receipt Date: 20110110
  Transmission Date: 20110831
  Serious: No
  Sender: FDA-Public Use
  Company Number: 321352

PATIENT
  Age: 60 Year
  Sex: Female

DRUGS (3)
  1. VICTOZA [Suspect]
     Indication: TYPE 2 DIABETES MELLITUS
     Dosage: 1.2 MG, SUBCUTANEOUS
     Route: 058
     Dates: start: 20100701
  2. ACTOS MET (METFORMIN HYDROCHLORIDE, PIOGLITAZONE HYDROCHLORIDE) [Concomitant]
  3. LANTUS [Interacting]

REACTIONS (1)
  - FLATULENCE [None]
